FAERS Safety Report 10983027 (Version 1)
Quarter: 2015Q1

REPORT INFORMATION
  Report Type: Spontaneous
  Country: GB (occurrence: None)
  Receive Date: 20150302
  Receipt Date: 20150302
  Transmission Date: 20150721
  Serious: Yes (Life-Threatening)
  Sender: FDA-Public Use
  Company Number: 2014SYM00178

PATIENT
  Age: 86 Year
  Sex: Female
  Weight: 99 kg

DRUGS (17)
  1. IBUPROFEN. [Concomitant]
     Active Substance: IBUPROFEN
  2. HYDROMOL (ISOPROPYL MYRISTATE, PARAFFIN, LIQUID) [Concomitant]
  3. SENNA [Concomitant]
     Active Substance: SENNA LEAF\SENNOSIDES\SENNOSIDES A AND B
  4. SOLIFENACIN [Concomitant]
     Active Substance: SOLIFENACIN
  5. ACEON [Suspect]
     Active Substance: PERINDOPRIL ERBUMINE
     Indication: PRODUCT USED FOR UNKNOWN INDICATION
     Dates: start: 20140730
  6. LACRI-LUBE S.O.P. (CHLOROBUTANOL, PARAFFIN, LIQUID, WHITE SOFT PARAFFIN, WOOL FAT) [Concomitant]
  7. BISOPROLOL [Concomitant]
     Active Substance: BISOPROLOL
  8. PARACETAMOL [Concomitant]
     Active Substance: ACETAMINOPHEN
  9. ADCAL D3 (CALCIUM CARBONATE, COLECALCIFEROL) [Concomitant]
  10. FUROSEMIDE. [Concomitant]
     Active Substance: FUROSEMIDE
  11. OMEPRAZOLE. [Concomitant]
     Active Substance: OMEPRAZOLE
  12. CLOPIDOGREL [Concomitant]
     Active Substance: CLOPIDOGREL BISULFATE
  13. MONOMIL (ISOSORBIDE MONONITRATE) [Concomitant]
  14. SIMVASTATIN. [Concomitant]
     Active Substance: SIMVASTATIN
  15. AMLODIPINE [Concomitant]
     Active Substance: AMLODIPINE BESYLATE
  16. CODEINE PHOSPHATE [Concomitant]
     Active Substance: CODEINE PHOSPHATE
  17. LIQUIFILM TEARS (POLYVINYL ALCOHOL) [Concomitant]

REACTIONS (2)
  - Lip swelling [None]
  - Angioedema [None]

NARRATIVE: CASE EVENT DATE: 20141031
